FAERS Safety Report 9799506 (Version 1)
Quarter: 2014Q1

REPORT INFORMATION
  Report Type: Spontaneous
  Country: CH (occurrence: CH)
  Receive Date: 20140106
  Receipt Date: 20140106
  Transmission Date: 20141002
  Serious: Yes (Hospitalization)
  Sender: FDA-Public Use
  Company Number: CH-ASTRAZENECA-2013SE94399

PATIENT
  Age: 89 Year
  Sex: Female

DRUGS (14)
  1. NEXIUM [Suspect]
     Route: 048
  2. FOSAMAX [Interacting]
     Indication: OSTEOPOROSIS
     Route: 048
     Dates: start: 2000, end: 2010
  3. ARANESP [Concomitant]
     Route: 058
  4. ASPIRIN CARDIO [Concomitant]
     Route: 048
  5. CONCOR [Concomitant]
     Route: 048
  6. APROVEL [Concomitant]
     Route: 048
  7. TORASEMID [Concomitant]
     Route: 048
  8. PRAVASTATIN [Concomitant]
     Route: 048
  9. DAFALGAN [Concomitant]
     Route: 048
  10. CALCIMAGON D3 [Concomitant]
     Route: 048
  11. GYNOTARDYFERON [Concomitant]
     Route: 048
  12. TEMESTA [Concomitant]
     Route: 048
  13. DETRUSITOL [Concomitant]
     Route: 048
  14. ALLOPUR [Concomitant]
     Route: 048

REACTIONS (2)
  - Drug interaction [Unknown]
  - Pathological fracture [Recovered/Resolved with Sequelae]
